FAERS Safety Report 7634131-X (Version None)
Quarter: 2011Q3

REPORT INFORMATION
  Report Type: 
  Country: None (occurrence: None)
  Receive Date: 20110725
  Receipt Date: 20110715
  Transmission Date: 20111222
  Serious: Yes (Other)
  Sender: FDA-Public Use
  Company Number: TR-ABBOTT-11P-161-0839909-00

PATIENT
  Age: 26 Year
  Sex: Male

DRUGS (7)
  1. CORTICOSTEROIDS [Suspect]
     Indication: GRAFT VERSUS HOST DISEASE
  2. 12 GY [Concomitant]
     Indication: RADIOTHERAPY
  3. CYCLOSPORINE [Suspect]
     Indication: PROPHYLAXIS AGAINST GRAFT VERSUS HOST DISEASE
  4. CYCLOPHOSPHAMIDE [Concomitant]
     Indication: RADIOTHERAPY
  5. IMMUNE GLOBULIN NOS [Concomitant]
     Indication: HYPOGAMMAGLOBULINAEMIA
     Dosage: MONTHLY
     Route: 042
  6. METHOTREXATE [Suspect]
     Indication: PROPHYLAXIS AGAINST GRAFT VERSUS HOST DISEASE
  7. MYCOPHENOLATE MOFETIL [Suspect]
     Indication: GRAFT VERSUS HOST DISEASE

REACTIONS (4)
  - ACUTE GRAFT VERSUS HOST DISEASE [None]
  - CYTOMEGALOVIRUS INFECTION [None]
  - ASPERGILLOSIS [None]
  - BLOOD CULTURE POSITIVE [None]
